FAERS Safety Report 13637862 (Version 1)
Quarter: 2017Q2

REPORT INFORMATION
  Report Type: Spontaneous
  Country: DK (occurrence: DK)
  Receive Date: 20170609
  Receipt Date: 20170609
  Transmission Date: 20170830
  Serious: Yes (Hospitalization)
  Sender: FDA-Public Use
  Company Number: DK-MYLANLABS-2017M1033557

PATIENT

DRUGS (10)
  1. BUPIVACAINE. [Concomitant]
     Active Substance: BUPIVACAINE
     Indication: ANAESTHESIA
     Dosage: 0.5% GIVEN LUMBAR SPINAL
     Route: 065
  2. KETOBEMIDONE [Concomitant]
     Active Substance: KETOBEMIDONE
     Indication: PRODUCT USED FOR UNKNOWN INDICATION
     Route: 065
  3. PARACETAMOL [Concomitant]
     Active Substance: ACETAMINOPHEN
     Indication: PAIN
     Dosage: PREOPERATIVE/POSTOPERATVE
     Route: 048
  4. CELECOXIB. [Concomitant]
     Active Substance: CELECOXIB
     Indication: ANALGESIC THERAPY
     Dosage: 400 MG, PREOPERATIVE
  5. MORPHINE [Concomitant]
     Active Substance: MORPHINE
     Dosage: UNK
     Route: 042
  6. GABAPENTIN. [Suspect]
     Active Substance: GABAPENTIN
     Indication: PROCEDURAL PAIN
     Dosage: 1300 MG, QD
     Route: 048
  7. MORPHINE [Concomitant]
     Active Substance: MORPHINE
     Indication: ANALGESIC THERAPY
     Dosage: 20 MILLIGRAM DAILY; PATIENTS BELOW 70
     Route: 042
  8. MORPHINE [Concomitant]
     Active Substance: MORPHINE
     Dosage: 10 MILLIGRAM DAILY; PATIENTS ABOVE 70 YEARS
     Route: 042
  9. OXYCODONE [Concomitant]
     Active Substance: OXYCODONE
     Indication: PAIN
     Route: 065
  10. CELECOXIB. [Concomitant]
     Active Substance: CELECOXIB
     Dosage: 200 MG, BID 400 MILLIGRAM DAILY; POST OPERATIVE, DAY 1-6
     Route: 065

REACTIONS (5)
  - Memory impairment [Unknown]
  - Hypotension [Unknown]
  - Diplopia [Unknown]
  - Balance disorder [Unknown]
  - Sedation [Unknown]
